FAERS Safety Report 6592350-8 (Version None)
Quarter: 2010Q1

REPORT INFORMATION
  Report Type: 
  Country: None (occurrence: None)
  Receive Date: 20100221
  Receipt Date: 20091006
  Transmission Date: 20100710
  Serious: Yes (Other)
  Sender: FDA-Public Use
  Company Number: US-ALLERGAN-0911675US

PATIENT
  Age: 65 Year
  Sex: Male
  Weight: 74.83 kg

DRUGS (2)
  1. BOTOX [Suspect]
     Indication: HEADACHE
     Dosage: 200 UNITS, SINGLE
     Route: 030
     Dates: start: 20090728, end: 20090728
  2. BOTOX [Suspect]
     Dosage: 60 UNITS, SINGLE
     Dates: start: 20010101, end: 20010101

REACTIONS (2)
  - MUSCULAR WEAKNESS [None]
  - NECK PAIN [None]
